FAERS Safety Report 24997147 (Version 2)
Quarter: 2025Q1

REPORT INFORMATION
  Report Type: Spontaneous
  Country: AT (occurrence: AT)
  Receive Date: 20250221
  Receipt Date: 20250226
  Transmission Date: 20250408
  Serious: Yes (Death, Hospitalization, Other)
  Sender: GILEAD
  Company Number: AT-GILEAD-2025-0704954

PATIENT
  Age: 66 Year
  Sex: Male

DRUGS (1)
  1. YESCARTA [Suspect]
     Active Substance: AXICABTAGENE CILOLEUCEL
     Indication: Product used for unknown indication
     Route: 065

REACTIONS (3)
  - Death [Fatal]
  - Large intestine perforation [Recovered/Resolved]
  - Drug ineffective [Not Recovered/Not Resolved]

NARRATIVE: CASE EVENT DATE: 20230920
